FAERS Safety Report 16635194 (Version 3)
Quarter: 2019Q3

REPORT INFORMATION
  Report Type: Report from Study
  Country: SG (occurrence: SG)
  Receive Date: 20190726
  Receipt Date: 20190816
  Transmission Date: 20191004
  Serious: Yes (Hospitalization)
  Sender: FDA-Public Use
  Company Number: PHHY2018SG044757

PATIENT
  Age: 58 Year
  Sex: Female
  Weight: 41.8 kg

DRUGS (8)
  1. HEPARINOID [Concomitant]
     Active Substance: CHONDROITIN SULFATE (BOVINE)
     Indication: PROPHYLAXIS
     Dosage: 0.3 OT, UNK
     Route: 061
     Dates: start: 20180318, end: 20180326
  2. OMEPRAZOLE. [Concomitant]
     Active Substance: OMEPRAZOLE
     Indication: PROPHYLAXIS
     Dosage: 20 OT, UNK
     Route: 048
     Dates: start: 20160217, end: 20180315
  3. CHOLINE SALICYLATE [Concomitant]
     Active Substance: CHOLINE SALICYLATE
     Indication: PROPHYLAXIS
     Dosage: 8.7 OT, UNK
     Route: 061
     Dates: start: 20180323, end: 20180326
  4. ACETAMINOPHEN. [Concomitant]
     Active Substance: ACETAMINOPHEN
     Indication: PRODUCT USED FOR UNKNOWN INDICATION
     Dosage: UNK
     Route: 065
  5. OMEPRAZOLE. [Concomitant]
     Active Substance: OMEPRAZOLE
     Dosage: 20 OT, UNK
     Route: 048
     Dates: start: 20180316
  6. VOTRIENT [Suspect]
     Active Substance: PAZOPANIB HYDROCHLORIDE
     Indication: RENAL CELL CARCINOMA
     Dosage: 600 MG, UNK
     Route: 048
     Dates: start: 20180222, end: 20180307
  7. VOTRIENT [Suspect]
     Active Substance: PAZOPANIB HYDROCHLORIDE
     Dosage: 800 MG, UNK
     Route: 048
     Dates: start: 20180308, end: 20180312
  8. VOTRIENT [Suspect]
     Active Substance: PAZOPANIB HYDROCHLORIDE
     Dosage: 800 MG, UNK
     Route: 048
     Dates: start: 20180313

REACTIONS (12)
  - Diarrhoea [Recovered/Resolved]
  - Nausea [Recovered/Resolved]
  - Cushingoid [Not Recovered/Not Resolved]
  - Nausea [Recovered/Resolved]
  - Oropharyngeal candidiasis [Not Recovered/Not Resolved]
  - Alanine aminotransferase increased [Recovered/Resolved]
  - Vomiting [Recovered/Resolved]
  - Platelet count decreased [Unknown]
  - Dizziness [Not Recovered/Not Resolved]
  - Blood alkaline phosphatase increased [Recovered/Resolved]
  - Hypophosphataemia [Recovered/Resolved]
  - Jaundice [Recovered/Resolved]

NARRATIVE: CASE EVENT DATE: 20180309
